FAERS Safety Report 20023437 (Version 4)
Quarter: 2022Q1

REPORT INFORMATION
  Report Type: Spontaneous
  Country: US (occurrence: US)
  Receive Date: 20211102
  Receipt Date: 20220222
  Transmission Date: 20220423
  Serious: Yes (Hospitalization, Other)
  Sender: FDA-Public Use
  Company Number: US-Global Blood Therapeutics Inc-US-GBT-21-03704

PATIENT
  Sex: Male

DRUGS (3)
  1. OXBRYTA [Suspect]
     Active Substance: VOXELOTOR
     Indication: Sickle cell disease
     Route: 048
     Dates: start: 20210424
  2. UNSPECIFIED INGREDIENT [Concomitant]
     Active Substance: UNSPECIFIED INGREDIENT
     Indication: Product used for unknown indication
     Dosage: NOT PROVIDED
  3. MELOXICAM [Concomitant]
     Active Substance: MELOXICAM
     Indication: Product used for unknown indication
     Dosage: NOT PROVIDED

REACTIONS (10)
  - Osteonecrosis [Unknown]
  - Sickle cell anaemia with crisis [Unknown]
  - Surgery [Unknown]
  - Procedural haemorrhage [Unknown]
  - Sickle cell anaemia with crisis [Unknown]
  - Vertigo [Unknown]
  - Sickle cell anaemia with crisis [Unknown]
  - Abdominal distension [Unknown]
  - Abdominal pain upper [Unknown]
  - Product dose omission issue [Unknown]

NARRATIVE: CASE EVENT DATE: 20210101
